FAERS Safety Report 6365997-1 (Version None)
Quarter: 2009Q3

REPORT INFORMATION
  Report Type: 
  Country: None (occurrence: None)
  Receive Date: 20090919
  Receipt Date: 20090825
  Transmission Date: 20100115
  Serious: No
  Sender: FDA-Public Use
  Company Number: US-ABBOTT-09P-163-0593876-00

PATIENT
  Sex: Female
  Weight: 61.744 kg

DRUGS (10)
  1. HUMIRA [Suspect]
     Indication: CROHN'S DISEASE
     Dates: start: 20090403
  2. HUMIRA [Suspect]
     Indication: ANKYLOSING SPONDYLITIS
  3. MULTI-VITAMINS [Concomitant]
     Indication: DRUG USE FOR UNKNOWN INDICATION
  4. IRON [Concomitant]
     Indication: BLOOD IRON DECREASED
  5. WELCHOL [Concomitant]
     Indication: GASTROINTESTINAL MOTILITY DISORDER
  6. IMODIUM [Concomitant]
     Indication: DIARRHOEA
  7. ESTRACE [Concomitant]
     Indication: HORMONE REPLACEMENT THERAPY
  8. SUDAFED 12 HOUR [Concomitant]
     Indication: HYPERSENSITIVITY
  9. CLARITIN [Concomitant]
     Indication: HYPERSENSITIVITY
  10. TYLENOL (CAPLET) [Concomitant]
     Indication: DRUG USE FOR UNKNOWN INDICATION

REACTIONS (6)
  - ALOPECIA [None]
  - DIARRHOEA [None]
  - DRUG DOSE OMISSION [None]
  - DUODENAL ULCER [None]
  - GASTROINTESTINAL HAEMORRHAGE [None]
  - HERPES ZOSTER [None]
